FAERS Safety Report 19109194 (Version 1)
Quarter: 2021Q2

REPORT INFORMATION
  Report Type: Spontaneous
  Country: US (occurrence: US)
  Receive Date: 20210409
  Receipt Date: 20210409
  Transmission Date: 20210717
  Serious: Yes (Other)
  Sender: FDA-Public Use
  Company Number: US-DRREDDYS-USA/USA/21/0133747

PATIENT
  Age: 12 Year
  Sex: Female

DRUGS (1)
  1. ZENATANE [Suspect]
     Active Substance: ISOTRETINOIN
     Indication: PRODUCT USE IN UNAPPROVED INDICATION
     Dosage: RMA ISSUE DATE: 1/12/2021 12:00:00 AM
     Route: 048

REACTIONS (1)
  - Affective disorder [Unknown]
